FAERS Safety Report 25706559 (Version 1)
Quarter: 2025Q3

REPORT INFORMATION
  Report Type: Spontaneous
  Country: US (occurrence: US)
  Receive Date: 20250820
  Receipt Date: 20250820
  Transmission Date: 20251021
  Serious: No
  Sender: CATALYST PHARMA
  Company Number: US-CATALYST PHARMACEUTICALS-US-CATA-25-01094

PATIENT
  Age: 10 Year
  Sex: Male
  Weight: 51.701 kg

DRUGS (6)
  1. AGAMREE [Suspect]
     Active Substance: VAMOROLONE
     Indication: Duchenne muscular dystrophy
     Dosage: 5 AND HALF ML ONCE A DAY
     Route: 048
     Dates: start: 20240608, end: 2024
  2. AGAMREE [Suspect]
     Active Substance: VAMOROLONE
     Dosage: 6 ML ONCE A DAY
     Route: 048
     Dates: start: 20240823, end: 20250718
  3. AGAMREE [Suspect]
     Active Substance: VAMOROLONE
     Dosage: 6 ML ONCE A DAY
     Route: 048
     Dates: start: 20250720
  4. FAMOTIDINE [Concomitant]
     Active Substance: FAMOTIDINE
     Indication: Dyspepsia
     Route: 065
  5. LORATADINE [Concomitant]
     Active Substance: LORATADINE
     Indication: Seasonal allergy
     Route: 065
  6. VITAMIN D3 [Concomitant]
     Active Substance: CHOLECALCIFEROL
     Indication: Hypovitaminosis
     Dosage: 400 UNITS ONCE A DAY
     Route: 065

REACTIONS (2)
  - Illness [Recovered/Resolved]
  - Product dose omission issue [Unknown]

NARRATIVE: CASE EVENT DATE: 20250719
